FAERS Safety Report 5684754-2 (Version None)
Quarter: 2008Q1

REPORT INFORMATION
  Report Type: 
  Country: None (occurrence: None)
  Receive Date: 20080328
  Receipt Date: 20070907
  Transmission Date: 20080703
  Serious: No
  Sender: FDA-Public Use
  Company Number: US-BRISTOL-MYERS SQUIBB COMPANY-13886700

PATIENT
  Age: 74 Year
  Sex: Female
  Weight: 99 kg

DRUGS (3)
  1. ERBITUX [Suspect]
     Indication: COLORECTAL CANCER METASTATIC
     Dosage: THERAPY DURATION : 1000-1100.
     Route: 042
     Dates: start: 20070820, end: 20070820
  2. ABILIFY [Concomitant]
  3. BENADRYL [Concomitant]
     Indication: PREMEDICATION
     Dosage: IVPB, PREMEDICATION
     Route: 042

REACTIONS (5)
  - CONFUSIONAL STATE [None]
  - COUGH [None]
  - FLUSHING [None]
  - PRURITUS [None]
  - WHEEZING [None]
